FAERS Safety Report 6597129-9 (Version None)
Quarter: 2010Q1

REPORT INFORMATION
  Report Type: 
  Country: None (occurrence: None)
  Receive Date: 20100216
  Receipt Date: 20100203
  Transmission Date: 20100710
  Serious: Yes (Death, Life-Threatening, Hospitalization, Disabling, Other)
  Sender: FDA-Public Use
  Company Number: WAES 1001USA01752

PATIENT
  Age: 56 Year
  Sex: Female
  Weight: 61.6892 kg

DRUGS (30)
  1. PRIMAXIN [Suspect]
     Dosage: 500/ 500 MG/Q6H/ IV
     Route: 042
     Dates: start: 20091110, end: 20091116
  2. BLINDED THERAPY UNK [Suspect]
     Indication: SYSTEMIC CANDIDA
     Dates: start: 20091113, end: 20091115
  3. TAB VORICONAZOLE UNK [Suspect]
     Dosage: 400/ 250 MG/ BID/ PO
     Route: 048
     Dates: start: 20091109, end: 20091113
  4. POWD VORICONAZOLE UNK [Suspect]
     Dosage: 250 MG/ BID/ IV
     Route: 042
     Dates: start: 20091114, end: 20091119
  5. LASIX [Concomitant]
  6. ACETAMINOPHEN [Concomitant]
  7. ACETYLCYSTEINE [Concomitant]
  8. ALBUTEROL [Concomitant]
  9. AZITHROMYC [Concomitant]
  10. DEXTROMETHORPHAN (+) GUAIFENESIN [Concomitant]
  11. DOCUSATE SODIUM [Concomitant]
  12. FLUCONAZOLE [Concomitant]
  13. QUAIFENESIN [Concomitant]
  14. INSULIN GLARGINE [Concomitant]
  15. LACTULOSE [Concomitant]
  16. LANSOPRAZOLE [Concomitant]
  17. LISINOPRIL [Concomitant]
  18. MAGNESIUM OXIDE [Concomitant]
  19. MAGNESIUM SULFATE [Concomitant]
  20. MYCOPHENOLATE MOFETIL [Concomitant]
  21. ONDANSETRON [Concomitant]
  22. OSELTAMIVIR PHOSPHATE [Concomitant]
  23. PENTAMIDINE ISETHIONATE [Concomitant]
  24. PIPERACILLIN SODIUM (+) TAZOBACT [Concomitant]
  25. POTASSIUM (UNSPECIFIED) [Concomitant]
  26. PREDNISONE [Concomitant]
  27. TACROLIMUS [Concomitant]
  28. VALGANCICLOVIR HCL [Concomitant]
  29. VANCOMYCIN [Concomitant]
  30. VITAMINS (UNSPECIFIED) [Concomitant]

REACTIONS (17)
  - ADRENAL INSUFFICIENCY [None]
  - BRADYCARDIA [None]
  - BRONCHOPULMONARY ASPERGILLOSIS [None]
  - CARDIAC ARREST [None]
  - COGNITIVE DISORDER [None]
  - FLUID OVERLOAD [None]
  - GRAND MAL CONVULSION [None]
  - H1N1 INFLUENZA [None]
  - HYPOGLYCAEMIA [None]
  - HYPOKALAEMIA [None]
  - HYPONATRAEMIA [None]
  - HYPOTENSION [None]
  - LOSS OF CONSCIOUSNESS [None]
  - MUCORMYCOSIS [None]
  - MULTI-ORGAN FAILURE [None]
  - PNEUMONIA [None]
  - RESPIRATORY FAILURE [None]
